FAERS Safety Report 4519614-3 (Version None)
Quarter: 2004Q4

REPORT INFORMATION
  Report Type: 
  Country: None (occurrence: None)
  Receive Date: 20041203
  Receipt Date: 20040714
  Transmission Date: 20050328
  Serious: Yes (Hospitalization)
  Sender: FDA-Public Use
  Company Number: 2004-AP-00237AP

PATIENT
  Age: 53 Year
  Sex: Male
  Weight: 85 kg

DRUGS (7)
  1. MICARDIS [Suspect]
     Indication: HYPERTENSION
     Dosage: 1 ANZ (80 MG), PO
     Route: 048
     Dates: start: 20040420
  2. VALSARTAN (BLIDN) (VALSARTAN) [Suspect]
     Indication: HYPERTENSION
     Dosage: 1 ANZ (160 MG), PO
     Route: 048
     Dates: start: 20040420
  3. PLACEBO (BLIND) (PLACEBO) [Suspect]
     Indication: HYPERTENSION
     Dosage: 1 ANZ (NR), PO
     Route: 048
     Dates: start: 20040420
  4. FUROSEMIDE [Concomitant]
  5. EGILAK [Concomitant]
  6. GLYBURIDE [Concomitant]
  7. DIGOXIN [Concomitant]

REACTIONS (1)
  - CARDIAC FAILURE CONGESTIVE [None]
